FAERS Safety Report 23147018 (Version 2)
Quarter: 2023Q4

REPORT INFORMATION
  Report Type: Spontaneous
  Country: US (occurrence: US)
  Receive Date: 20231106
  Receipt Date: 20231208
  Transmission Date: 20240110
  Serious: No
  Sender: FDA-Public Use
  Company Number: US-LEO Pharma-364636

PATIENT
  Age: 54 Year
  Sex: Male

DRUGS (15)
  1. ADBRY [Suspect]
     Active Substance: TRALOKINUMAB-LDRM
     Indication: Dermatitis atopic
     Dosage: EXP: 09/30/2024
     Route: 058
     Dates: start: 20230901
  2. ADBRY [Suspect]
     Active Substance: TRALOKINUMAB-LDRM
     Indication: Dermatitis atopic
     Dosage: EXP: 09/30/2024
     Route: 058
     Dates: start: 20230901
  3. ADBRY [Suspect]
     Active Substance: TRALOKINUMAB-LDRM
     Indication: Dermatitis
     Dosage: EXP: 09/30/2024
     Route: 058
     Dates: start: 20230901
  4. ADBRY [Suspect]
     Active Substance: TRALOKINUMAB-LDRM
     Indication: Pruritus
     Dosage: EXP: 09/30/2024
     Route: 058
     Dates: start: 20230901
  5. ADBRY [Suspect]
     Active Substance: TRALOKINUMAB-LDRM
     Indication: Rash
     Dosage: EXP: 09/30/2024
     Route: 058
     Dates: start: 20230901
  6. ADBRY [Suspect]
     Active Substance: TRALOKINUMAB-LDRM
     Indication: Rash
     Dosage: EXP: 09/30/2024
     Route: 058
     Dates: start: 20230901
  7. ROSUVASTATIN [Concomitant]
     Active Substance: ROSUVASTATIN
     Indication: Product used for unknown indication
  8. KETOROLAC [Concomitant]
     Active Substance: KETOROLAC TROMETHAMINE
     Indication: Product used for unknown indication
  9. ESCITALOPRAM [Concomitant]
     Active Substance: ESCITALOPRAM OXALATE
     Indication: Product used for unknown indication
  10. VENLAFAXINE [Concomitant]
     Active Substance: VENLAFAXINE HYDROCHLORIDE
     Indication: Product used for unknown indication
  11. CLOBETASOL [Concomitant]
     Active Substance: CLOBETASOL
     Indication: Product used for unknown indication
  12. ARMOUR THYROID [Concomitant]
     Active Substance: THYROID, PORCINE
     Indication: Product used for unknown indication
  13. OMEPRAZOLE [Concomitant]
     Active Substance: OMEPRAZOLE
     Indication: Product used for unknown indication
  14. TACROLIMUS [Concomitant]
     Active Substance: TACROLIMUS
     Indication: Product used for unknown indication
     Dosage: 0.1%
  15. TROMETHAMINE [Concomitant]
     Active Substance: TROMETHAMINE
     Indication: Product used for unknown indication

REACTIONS (3)
  - Injection site pain [Recovered/Resolved]
  - Hypersensitivity [Unknown]
  - Arthralgia [Recovered/Resolved]
